FAERS Safety Report 7816829-3 (Version None)
Quarter: 2011Q4

REPORT INFORMATION
  Report Type: 
  Country: None (occurrence: None)
  Receive Date: 20111017
  Receipt Date: 20111011
  Transmission Date: 20120403
  Serious: Yes (Death, Other)
  Sender: FDA-Public Use
  Company Number: US-ASTELLAS-2011US005050

PATIENT
  Sex: Male
  Weight: 93 kg

DRUGS (7)
  1. INSULIN [Concomitant]
     Indication: PRODUCT USED FOR UNKNOWN INDICATION
     Dosage: UNK
     Route: 065
  2. ANTIFUNGALS [Concomitant]
     Indication: PRODUCT USED FOR UNKNOWN INDICATION
     Dosage: UNK
     Route: 065
  3. PROTONIX [Concomitant]
     Indication: PRODUCT USED FOR UNKNOWN INDICATION
     Dosage: UNK
     Route: 065
  4. PROGRAF [Suspect]
     Indication: HEART TRANSPLANT
     Dosage: 0.5 MG, BID
     Route: 048
     Dates: start: 20100304, end: 20110813
  5. MYCOPHENOLATE MOFETIL (CELLCEPT) [Concomitant]
     Indication: PRODUCT USED FOR UNKNOWN INDICATION
     Dosage: UNK
     Route: 065
  6. CMB [Concomitant]
     Indication: PRODUCT USED FOR UNKNOWN INDICATION
     Dosage: UNK
     Route: 065
  7. PREDNISONE [Concomitant]
     Indication: PRODUCT USED FOR UNKNOWN INDICATION
     Dosage: UNK
     Route: 065

REACTIONS (8)
  - RENAL FAILURE [None]
  - PNEUMONIA [None]
  - PSEUDOMONAS INFECTION [None]
  - ASPERGILLOSIS [None]
  - VASCULAR GRAFT [None]
  - OSTEOMYELITIS [None]
  - CARDIOGENIC SHOCK [None]
  - MULTI-ORGAN FAILURE [None]
